FAERS Safety Report 20466765 (Version 2)
Quarter: 2022Q1

REPORT INFORMATION
  Report Type: Report from Study
  Country: CH (occurrence: CH)
  Receive Date: 20220214
  Receipt Date: 20220215
  Transmission Date: 20220423
  Serious: Yes (Death)
  Sender: FDA-Public Use
  Company Number: CH-ABBVIE-22K-151-4276394-00

PATIENT
  Age: 84 Year
  Sex: Female

DRUGS (2)
  1. CARBIDOPA\LEVODOPA [Suspect]
     Active Substance: CARBIDOPA\LEVODOPA
     Indication: Parkinson^s disease
     Dosage: 1 CASSETTE /DAY?24H THERAPY
     Route: 050
     Dates: start: 20160309
  2. CARBIDOPA\LEVODOPA [Suspect]
     Active Substance: CARBIDOPA\LEVODOPA
     Dosage: MD: 5 ML, CRD: 4.4 ML/H, CRN: 2.5 ML/H, ED: 1.7 ML, 24H THERAPY
     Route: 050
     Dates: start: 20200412, end: 20220211

REACTIONS (4)
  - Palliative care [Fatal]
  - General physical health deterioration [Not Recovered/Not Resolved]
  - Hypophagia [Not Recovered/Not Resolved]
  - Fluid intake reduced [Not Recovered/Not Resolved]

NARRATIVE: CASE EVENT DATE: 20220210
